FAERS Safety Report 10262886 (Version 2)
Quarter: 2014Q2

REPORT INFORMATION
  Report Type: Report from Study
  Country: US (occurrence: US)
  Receive Date: 20140626
  Receipt Date: 20140626
  Transmission Date: 20141212
  Serious: Yes (Other)
  Sender: FDA-Public Use
  Company Number: US-MYLANLABS-2013S1021295

PATIENT
  Age: 36 Year
  Sex: Female

DRUGS (5)
  1. CLOZAPINE TABLETS [Suspect]
     Route: 048
     Dates: start: 20130826, end: 20130903
  2. ZYPREXA [Concomitant]
  3. CYMBALTA [Concomitant]
  4. LAMICTAL [Concomitant]
  5. IRON [Concomitant]

REACTIONS (1)
  - Granulocytopenia [Not Recovered/Not Resolved]
